FAERS Safety Report 11060737 (Version 2)
Quarter: 2015Q2

REPORT INFORMATION
  Report Type: Report from Study
  Country: US (occurrence: US)
  Receive Date: 20150423
  Receipt Date: 20150423
  Transmission Date: 20150821
  Serious: Yes (Death)
  Sender: FDA-Public Use
  Company Number: US-ASTRAZENECA-2015SE36754

PATIENT
  Age: 7 Month
  Sex: Female

DRUGS (8)
  1. ERTAPENEM [Concomitant]
     Active Substance: ERTAPENEM
  2. MEROPENEM. [Suspect]
     Active Substance: MEROPENEM
     Indication: KLEBSIELLA INFECTION
     Route: 042
  3. ETOPOSIDE. [Concomitant]
     Active Substance: ETOPOSIDE
  4. MEROPENEM. [Suspect]
     Active Substance: MEROPENEM
     Indication: PYREXIA
     Route: 042
  5. STEROID [Concomitant]
     Active Substance: UNSPECIFIED INGREDIENT
  6. VANCOMYCIN [Concomitant]
     Active Substance: VANCOMYCIN
  7. AMIKACIN [Concomitant]
     Active Substance: AMIKACIN
     Indication: KLEBSIELLA INFECTION
  8. COLISTIN [Concomitant]
     Active Substance: COLISTIN
     Indication: CLOSTRIDIUM DIFFICILE INFECTION

REACTIONS (1)
  - Drug resistance [Fatal]
